FAERS Safety Report 7939324-X (Version None)
Quarter: 2011Q4

REPORT INFORMATION
  Report Type: 
  Country: None (occurrence: None)
  Receive Date: 20111125
  Receipt Date: 20111116
  Transmission Date: 20120403
  Serious: Yes (Other)
  Sender: FDA-Public Use
  Company Number: US-AMGEN-USASP2011060434

PATIENT
  Age: 90 Year
  Sex: Female

DRUGS (2)
  1. FORTEO [Concomitant]
  2. PROLIA [Suspect]
     Indication: OSTEOPOROSIS POSTMENOPAUSAL
     Dosage: 60 MG, Q6MO
     Dates: start: 20110701

REACTIONS (3)
  - SPINAL COMPRESSION FRACTURE [None]
  - PAIN [None]
  - BONE PAIN [None]
